FAERS Safety Report 8000671-7 (Version None)
Quarter: 2011Q4

REPORT INFORMATION
  Report Type: 
  Country: None (occurrence: None)
  Receive Date: 20111222
  Receipt Date: 20111209
  Transmission Date: 20120403
  Serious: Yes (Other)
  Sender: FDA-Public Use
  Company Number: US-AMGEN-USASP2011065694

PATIENT

DRUGS (1)
  1. EPOGEN [Suspect]
     Indication: PRODUCT USED FOR UNKNOWN INDICATION
     Dosage: 20000 IU, 3 TIMES/WK

REACTIONS (3)
  - THERAPEUTIC RESPONSE DECREASED [None]
  - CATHETER PLACEMENT [None]
  - APLASIA PURE RED CELL [None]
